FAERS Safety Report 7770906-4 (Version None)
Quarter: 2011Q3

REPORT INFORMATION
  Report Type: 
  Country: None (occurrence: None)
  Receive Date: 20110922
  Receipt Date: 20100826
  Transmission Date: 20111222
  Serious: Yes (Other)
  Sender: FDA-Public Use
  Company Number: US-ASTRAZENECA-2007UW21479

PATIENT
  Age: 46 Year
  Sex: Female

DRUGS (24)
  1. SEROQUEL [Suspect]
     Indication: INSOMNIA
     Route: 048
     Dates: start: 20030825
  2. SEROQUEL [Suspect]
     Route: 048
     Dates: start: 20030925, end: 20031112
  3. GLUCOTROL [Concomitant]
     Dates: start: 20000707
  4. SEROQUEL [Suspect]
     Dosage: 50-100 MG
     Route: 048
     Dates: start: 20030826, end: 20041220
  5. LISINOPRIL [Concomitant]
     Route: 048
     Dates: start: 20041108
  6. ADVAIR DISKUS 100/50 [Concomitant]
     Dosage: 100/50 MCG INHALE 1 PUFF PO BID
     Route: 048
     Dates: start: 20041209
  7. CLONAZEPAM [Concomitant]
     Dates: start: 20040923
  8. SPIRIVA [Concomitant]
     Dosage: 30^S INHALE ONE PUFF PO QD
     Route: 048
     Dates: start: 20041209
  9. SEROQUEL [Suspect]
     Indication: ANXIETY
     Route: 048
     Dates: start: 20030825
  10. SEROQUEL [Suspect]
     Route: 048
     Dates: start: 20030925, end: 20031112
  11. SEROQUEL [Suspect]
     Route: 048
     Dates: start: 20031201, end: 20040301
  12. GABAPENTIN [Concomitant]
     Dates: start: 20080202
  13. SEROQUEL [Suspect]
     Indication: DEPRESSION
     Route: 048
     Dates: start: 20030825
  14. SEROQUEL [Suspect]
     Route: 048
     Dates: start: 20030925, end: 20031112
  15. PRINIVIL [Concomitant]
     Dates: start: 20040413
  16. DILANTIN [Concomitant]
     Dates: start: 20040923
  17. SEROQUEL [Suspect]
     Dosage: ONE-HALF T BID AND ONE T PO HS
     Route: 048
     Dates: start: 20040927
  18. SEROQUEL [Suspect]
     Dosage: ONE-HALF T BID AND ONE T PO HS
     Route: 048
     Dates: start: 20040927
  19. SEROQUEL [Suspect]
     Dosage: 50-100 MG
     Route: 048
     Dates: start: 20030826, end: 20041220
  20. SEROQUEL [Suspect]
     Dosage: 50-100 MG
     Route: 048
     Dates: start: 20030826, end: 20041220
  21. SEROQUEL [Suspect]
     Route: 048
     Dates: start: 20031201, end: 20040301
  22. SEROQUEL [Suspect]
     Route: 048
     Dates: start: 20031201, end: 20040301
  23. SEROQUEL [Suspect]
     Dosage: ONE-HALF T BID AND ONE T PO HS
     Route: 048
     Dates: start: 20040927
  24. GEODON [Concomitant]

REACTIONS (5)
  - HYPERLIPIDAEMIA [None]
  - BLOOD CHOLESTEROL INCREASED [None]
  - SPINAL OSTEOARTHRITIS [None]
  - DIABETIC COMA [None]
  - DIABETES MELLITUS [None]
